FAERS Safety Report 6691421-5 (Version None)
Quarter: 2010Q2

REPORT INFORMATION
  Report Type: 
  Country: None (occurrence: None)
  Receive Date: 20100422
  Receipt Date: 20100420
  Transmission Date: 20101027
  Serious: Yes (Other)
  Sender: FDA-Public Use
  Company Number: US-ROXANE LABORATORIES, INC.-2010-RO-00447RO

PATIENT
  Sex: Female

DRUGS (2)
  1. RISPERIDONE [Suspect]
     Indication: MENTAL DISORDER
     Dosage: 2 MG
  2. CARBAMAZEPINE [Suspect]
     Indication: MENTAL DISORDER

REACTIONS (1)
  - GASTROINTESTINAL DISORDER [None]
